FAERS Safety Report 9053451 (Version 1)
Quarter: 2013Q1

REPORT INFORMATION
  Report Type: Spontaneous
  Country: NL (occurrence: NL)
  Receive Date: 20130208
  Receipt Date: 20130208
  Transmission Date: 20140127
  Serious: Yes (Life-Threatening)
  Sender: FDA-Public Use
  Company Number: NL-AMGEN-NLDSP2012081607

PATIENT
  Age: 81 Year
  Sex: Male
  Weight: 94 kg

DRUGS (21)
  1. PROLIA [Suspect]
     Indication: OSTEOPOROSIS
     Dosage: 60 MG, Q6MO
     Route: 058
     Dates: start: 20120929
  2. ARANESP [Concomitant]
     Indication: PRODUCT USED FOR UNKNOWN INDICATION
     Dosage: 60 MG, Q2WK
     Route: 042
     Dates: start: 20111115
  3. PARACETAMOL [Concomitant]
     Dosage: 100 MG, TID
     Route: 048
     Dates: start: 20100422
  4. SPONGOSTAN [Concomitant]
     Dosage: UNK
     Dates: start: 20120221
  5. ANDROCUR [Concomitant]
     Dosage: 50 MG, QD
     Route: 048
     Dates: start: 20100422
  6. CLEXANE [Concomitant]
     Dosage: UNK
     Route: 058
     Dates: start: 20110830
  7. EMLA                               /00675501/ [Concomitant]
     Dosage: UNK
     Dates: start: 20100901
  8. COLECALCIFEROL [Concomitant]
     Dosage: 1 ML, Q2WK
     Route: 042
     Dates: start: 20120313
  9. LUCRIN [Concomitant]
     Dosage: 11.25 MG, UNK
     Dates: start: 20120221
  10. NEBILET [Concomitant]
     Dosage: 5 MG, QD
     Route: 048
     Dates: start: 20110503
  11. OMEPRAZOLE [Concomitant]
     Dosage: 40 MG, BID
     Route: 048
     Dates: start: 20100721
  12. PRAVASTATIN [Concomitant]
     Dosage: 40 MG, QD
     Dates: start: 20110614
  13. TRAMADOL [Concomitant]
     Dosage: 50 MG, BID
     Route: 048
     Dates: start: 20121025
  14. VENOFER [Concomitant]
     Dosage: 100 MG, QMO
     Route: 042
     Dates: start: 20110913
  15. BUMETANIDE [Concomitant]
     Dosage: 2.5 MG, QD
     Route: 048
     Dates: start: 20120821
  16. CELESTONE                          /00008501/ [Concomitant]
     Dosage: 5 MG, QD
  17. FRAXIPARINE                        /01437701/ [Concomitant]
     Dosage: UNK
     Dates: start: 20111224
  18. VITAMINE [Concomitant]
     Dosage: UNK
     Dates: start: 20110302
  19. PREGABALIN [Concomitant]
     Dosage: 75 MG, QD
     Route: 048
     Dates: start: 20121120
  20. CLARITINE [Concomitant]
     Dosage: 10 MG, QD
     Route: 048
     Dates: start: 20100122
  21. CETOMACROGOL                       /01813001/ [Concomitant]
     Dosage: UNK
     Dates: start: 20100424

REACTIONS (3)
  - Hypocalcaemia [Recovering/Resolving]
  - Arrhythmia [Recovering/Resolving]
  - Oedema peripheral [Unknown]
